FAERS Safety Report 5819019-9 (Version None)
Quarter: 2008Q3

REPORT INFORMATION
  Report Type: 
  Country: None (occurrence: None)
  Receive Date: 20080721
  Receipt Date: 20080721
  Transmission Date: 20090109
  Serious: Yes (Other)
  Sender: FDA-Public Use
  Company Number: None

PATIENT
  Sex: Female

DRUGS (1)
  1. ATIVAN [Suspect]

REACTIONS (4)
  - AGGRESSION [None]
  - AGITATION [None]
  - HALLUCINATION, VISUAL [None]
  - PARADOXICAL DRUG REACTION [None]
